FAERS Safety Report 8410515-7 (Version None)
Quarter: 2012Q2

REPORT INFORMATION
  Report Type: 
  Country: None (occurrence: None)
  Receive Date: 20120323
  Receipt Date: 20111201
  Transmission Date: 20120825
  Serious: Yes (Other)
  Sender: FDA-Public Use
  Company Number: 163-21880-11120365

PATIENT
  Age: 64 Year
  Sex: Female
  Weight: 123 kg

DRUGS (9)
  1. ALENDRONATE SODIUM [Concomitant]
  2. LOMOTIL (LOMOTIL)(UNKNOWN) [Concomitant]
  3. REVLIMID [Suspect]
     Indication: MYELODYSPLASTIC SYNDROME
     Dosage: 10 MG, DAILY X 28 DAYS, PO,    5 MG, DAILY X 28 DAYS, PO
     Route: 048
     Dates: start: 20110101
  4. REVLIMID [Suspect]
     Indication: MYELODYSPLASTIC SYNDROME
     Dosage: 10 MG, DAILY X 28 DAYS, PO,    5 MG, DAILY X 28 DAYS, PO
     Route: 048
     Dates: start: 20080201
  5. PAXIL (PAROXETINE HYDROCHLORIDE)(UNKNOWN) [Concomitant]
  6. ADVAIR (SERETIDE MITE)(UNKNOWN) [Concomitant]
  7. CALTRATE (CALCIUM CARBONATE)(UNKNOWN) [Concomitant]
  8. SINGULAIR (MONTELUKAST SODIUM)(UNKNOWN) [Concomitant]
  9. SPIRIVA (TIOTROPIUM BROMIDE)(UNKNOWN) [Concomitant]

REACTIONS (2)
  - OEDEMA PERIPHERAL [None]
  - FULL BLOOD COUNT DECREASED [None]
